FAERS Safety Report 22175577 (Version 1)
Quarter: 2023Q2

REPORT INFORMATION
  Report Type: Spontaneous
  Country: US (occurrence: None)
  Receive Date: 20230404
  Receipt Date: 20230404
  Transmission Date: 20230722
  Serious: No
  Sender: FDA-Public Use
  Company Number: None

PATIENT
  Age: 73 Year
  Sex: Male
  Weight: 104.78 kg

DRUGS (18)
  1. CAPECITABINE [Suspect]
     Active Substance: CAPECITABINE
     Indication: Colon cancer
     Dosage: FREQUENCY : TWICE A DAY;?
     Route: 048
     Dates: end: 202304
  2. ALFUZOSIN [Concomitant]
     Active Substance: ALFUZOSIN
  3. AMLODIPINE [Concomitant]
     Active Substance: AMLODIPINE BESYLATE
  4. ASPIRIN [Concomitant]
  5. CALCIUM [Concomitant]
     Active Substance: CALCIUM
  6. DCARVEDILOL [Concomitant]
  7. DULOXETINE [Concomitant]
  8. DUTASTERIDE [Concomitant]
  9. FUROSEMIDE [Concomitant]
  10. GABAPENTIN [Concomitant]
  11. LATANOPROST [Concomitant]
  12. LEVOTHYROXINE [Concomitant]
  13. MAGNESIUM OXIDE [Concomitant]
  14. NOVOLIN N [Concomitant]
  15. SIMVASTATIN [Concomitant]
  16. TACROLIMUS [Concomitant]
  17. TESTOSTERONE [Concomitant]
  18. VITAMIN D3 [Concomitant]

REACTIONS (10)
  - Diarrhoea [None]
  - Fatigue [None]
  - Fatigue [None]
  - Decreased appetite [None]
  - Asthenia [None]
  - Dyspnoea [None]
  - Skin discolouration [None]
  - Pain in extremity [None]
  - Drug intolerance [None]
  - Bradykinesia [None]
